FAERS Safety Report 16848842 (Version 1)
Quarter: 2019Q3

REPORT INFORMATION
  Report Type: Other
  Country: US (occurrence: US)
  Receive Date: 20190925
  Receipt Date: 20190925
  Transmission Date: 20191005
  Serious: Yes (Hospitalization, Other)
  Sender: FDA-Public Use
  Company Number: US-ORCHID HEALTHCARE-2074873

PATIENT
  Age: 61 Year
  Sex: Male

DRUGS (2)
  1. LURASIDONE [Suspect]
     Active Substance: LURASIDONE
     Route: 065
  2. ARIPIPRAZOLE, TABLET [Suspect]
     Active Substance: ARIPIPRAZOLE
     Indication: SCHIZOPHRENIA
     Route: 065

REACTIONS (1)
  - Drug reaction with eosinophilia and systemic symptoms [Recovered/Resolved]
